FAERS Safety Report 10440798 (Version 1)
Quarter: 2014Q3

REPORT INFORMATION
  Report Type: Spontaneous
  Country: BR (occurrence: BR)
  Receive Date: 20140909
  Receipt Date: 20140909
  Transmission Date: 20150326
  Serious: Yes (Other)
  Sender: FDA-Public Use
  Company Number: PHHY2014BR115376

PATIENT
  Age: 72 Year
  Sex: Female

DRUGS (3)
  1. TAMOXIFEN [Concomitant]
     Active Substance: TAMOXIFEN
     Indication: BREAST CANCER METASTATIC
  2. LETROZOLE SANDOZ [Suspect]
     Active Substance: LETROZOLE
     Indication: BREAST CANCER METASTATIC
     Dosage: 2.5 MG, PER DAY
     Dates: start: 201208
  3. TAMOXIFEN [Concomitant]
     Active Substance: TAMOXIFEN
     Indication: ADJUVANT THERAPY

REACTIONS (2)
  - Metastases to liver [Unknown]
  - Malignant neoplasm progression [Unknown]

NARRATIVE: CASE EVENT DATE: 201212
